FAERS Safety Report 13443639 (Version 11)
Quarter: 2018Q1

REPORT INFORMATION
  Report Type: Report from Study
  Country: CO (occurrence: CO)
  Receive Date: 20170414
  Receipt Date: 20180201
  Transmission Date: 20180508
  Serious: Yes (Hospitalization, Other)
  Sender: FDA-Public Use
  Company Number: CO-ROCHE-1919574

PATIENT
  Age: 68 Year
  Sex: Female
  Weight: 88 kg

DRUGS (1)
  1. HERCEPTIN [Suspect]
     Active Substance: TRASTUZUMAB
     Indication: BREAST CANCER
     Route: 042

REACTIONS (16)
  - Blindness [Unknown]
  - Cognitive disorder [Recovering/Resolving]
  - Depression [Recovering/Resolving]
  - Renal failure [Recovered/Resolved with Sequelae]
  - Fracture [Recovered/Resolved with Sequelae]
  - Hyperglycaemia [Recovered/Resolved]
  - Blood pressure increased [Recovering/Resolving]
  - Laryngeal oedema [Recovered/Resolved]
  - Treponema test positive [Unknown]
  - Hypertriglyceridaemia [Recovered/Resolved]
  - Gangrene [Recovered/Resolved]
  - Glaucoma [Recovering/Resolving]
  - Vision blurred [Recovered/Resolved]
  - Cataract [Recovered/Resolved]
  - Cardiac failure congestive [Recovering/Resolving]
  - Discomfort [Not Recovered/Not Resolved]

NARRATIVE: CASE EVENT DATE: 20171207
